FAERS Safety Report 5116754-5 (Version None)
Quarter: 2006Q3

REPORT INFORMATION
  Report Type: 
  Country: None (occurrence: None)
  Receive Date: 20060925
  Receipt Date: 20060911
  Transmission Date: 20061208
  Serious: Yes (Hospitalization)
  Sender: FDA-Public Use
  Company Number: 2006113159

PATIENT
  Sex: Female

DRUGS (2)
  1. BEXTRA [Suspect]
     Dosage: ORAL
     Route: 048
     Dates: start: 20041001
  2. VIOXX [Suspect]
     Dosage: ORAL
     Route: 048
     Dates: start: 20020501, end: 20040930

REACTIONS (1)
  - CEREBROVASCULAR ACCIDENT [None]
